FAERS Safety Report 4428067-5 (Version None)
Quarter: 2004Q3

REPORT INFORMATION
  Report Type: 
  Country: None (occurrence: None)
  Receive Date: 20040726
  Receipt Date: 20040402
  Transmission Date: 20050211
  Serious: No
  Sender: FDA-Public Use
  Company Number: USA030845228

PATIENT
  Age: 77 Year
  Sex: Female
  Weight: 67 kg

DRUGS (8)
  1. FORTEO [Suspect]
     Dates: start: 20030821
  2. EXTRA STRENGTH TYLENOL [Concomitant]
  3. VICOPROFEN [Concomitant]
  4. LOTREL [Concomitant]
  5. VITAMIN E [Concomitant]
  6. VITAMIN A [Concomitant]
  7. VITAMIN C [Concomitant]
  8. CELEBREX [Concomitant]

REACTIONS (5)
  - ACCIDENTAL OVERDOSE [None]
  - ASTHENIA [None]
  - BACK PAIN [None]
  - FATIGUE [None]
  - OEDEMA PERIPHERAL [None]
